FAERS Safety Report 15694830 (Version 1)
Quarter: 2018Q4

REPORT INFORMATION
  Report Type: Spontaneous
  Country: US (occurrence: US)
  Receive Date: 20181206
  Receipt Date: 20181206
  Transmission Date: 20190205
  Serious: No
  Sender: FDA-Public Use
  Company Number: US-JNJFOC-20181109780

PATIENT
  Sex: Female
  Weight: 77.11 kg

DRUGS (1)
  1. TYLENOL EXTRA STRENGTH [Suspect]
     Active Substance: ACETAMINOPHEN
     Indication: TOOTHACHE
     Route: 048
     Dates: end: 20181105

REACTIONS (3)
  - Eye pruritus [Unknown]
  - Hypersensitivity [Unknown]
  - Eye swelling [Not Recovered/Not Resolved]
